FAERS Safety Report 4314936-3 (Version None)
Quarter: 2004Q1

REPORT INFORMATION
  Report Type: 
  Country: None (occurrence: None)
  Receive Date: 20040310
  Receipt Date: 20040310
  Transmission Date: 20041129
  Serious: Yes (Hospitalization)
  Sender: FDA-Public Use
  Company Number: None

PATIENT
  Age: 23 Year
  Sex: Male
  Weight: 94.3482 kg

DRUGS (1)
  1. CIPROFLOXACIN [Suspect]
     Indication: URINARY TRACT INFECTION
     Dosage: 500 MG TWICE A DA ORAL
     Route: 048
     Dates: start: 20040209, end: 20040219

REACTIONS (3)
  - HALLUCINATIONS, MIXED [None]
  - PSYCHOTIC DISORDER [None]
  - SUICIDAL IDEATION [None]
